FAERS Safety Report 23887379 (Version 1)
Quarter: 2024Q2

REPORT INFORMATION
  Report Type: Spontaneous
  Country: US (occurrence: US)
  Receive Date: 20240523
  Receipt Date: 20240523
  Transmission Date: 20240716
  Serious: No
  Sender: FDA-Public Use
  Company Number: US-APOTEX-2024AP005511

PATIENT
  Sex: Female

DRUGS (1)
  1. TERIPARATIDE [Suspect]
     Active Substance: TERIPARATIDE
     Indication: Product used for unknown indication
     Dosage: UNK, QD
     Route: 065
     Dates: start: 2024, end: 2024

REACTIONS (6)
  - Pruritus [Not Recovered/Not Resolved]
  - Erythema [Unknown]
  - Product contamination physical [Unknown]
  - Product dose omission issue [Unknown]
  - Device physical property issue [Unknown]
  - Headache [Unknown]

NARRATIVE: CASE EVENT DATE: 20240101
